FAERS Safety Report 9816422 (Version 2)
Quarter: 2014Q1

REPORT INFORMATION
  Report Type: Spontaneous
  Country: GB (occurrence: GB)
  Receive Date: 20140114
  Receipt Date: 20140219
  Transmission Date: 20141002
  Serious: Yes (Hospitalization)
  Sender: FDA-Public Use
  Company Number: GB-ELI_LILLY_AND_COMPANY-GB201401002567

PATIENT
  Age: 77 Year
  Sex: Male

DRUGS (2)
  1. HUMULIN NPH [Suspect]
     Indication: DIABETES MELLITUS
     Dosage: UNK, BID
     Route: 065
     Dates: end: 201307
  2. INSULIN HUMAN [Suspect]
     Indication: DIABETES MELLITUS
     Dosage: UNK, BID
     Route: 065
     Dates: end: 201307

REACTIONS (1)
  - Hyperglycaemia [Recovered/Resolved]
